FAERS Safety Report 5823018-0 (Version None)
Quarter: 2008Q3

REPORT INFORMATION
  Report Type: 
  Country: None (occurrence: None)
  Receive Date: 20080725
  Receipt Date: 20080718
  Transmission Date: 20090109
  Serious: Yes (Hospitalization)
  Sender: FDA-Public Use
  Company Number: B0530605A

PATIENT
  Age: 85 Year
  Sex: Female

DRUGS (7)
  1. SEREUPIN [Suspect]
     Route: 048
     Dates: start: 20010903, end: 20080703
  2. TICLOPIDINE HCL [Concomitant]
     Dates: start: 20030508
  3. ROCALTROL [Concomitant]
     Dosage: .25MCG PER DAY
     Dates: start: 20010606
  4. IMOVANE [Concomitant]
     Dosage: 7.5MG PER DAY
     Route: 048
     Dates: start: 20010903
  5. UNKNOWN DRUG [Concomitant]
     Dosage: 800MG PER DAY
     Dates: start: 20020820
  6. LANSOX [Concomitant]
     Dosage: 15MG PER DAY
     Route: 048
     Dates: start: 20060622
  7. CLODRONATE DISODIUM [Concomitant]
     Dates: start: 20011015

REACTIONS (1)
  - INAPPROPRIATE ANTIDIURETIC HORMONE SECRETION [None]
